FAERS Safety Report 19806179 (Version 1)
Quarter: 2021Q3

REPORT INFORMATION
  Report Type: Report from Study
  Country: GB (occurrence: GB)
  Receive Date: 20210908
  Receipt Date: 20210908
  Transmission Date: 20211014
  Serious: Yes (Life-Threatening, Other)
  Sender: FDA-Public Use
  Company Number: GB-PFIZER INC-2021821463

PATIENT
  Age: 66 Year
  Sex: Female
  Weight: 65.3 kg

DRUGS (25)
  1. ATEZOLIZUMAB. [Suspect]
     Active Substance: ATEZOLIZUMAB
     Indication: SMALL CELL LUNG CANCER EXTENSIVE STAGE
     Dosage: 1200 MG, EVERY 3 WEEKS DATE OF MOST RECENT DOSE OF STUDY DRUG PRIOR TO AE AND SAE: 24MAY2021
     Route: 041
     Dates: start: 20210414
  2. ATORVASTATIN [Concomitant]
     Active Substance: ATORVASTATIN
     Dosage: UNK
     Route: 065
  3. ATORVASTATIN [Concomitant]
     Active Substance: ATORVASTATIN
     Route: 065
  4. LANSOPRAZOLE. [Concomitant]
     Active Substance: LANSOPRAZOLE
     Dosage: UNK
     Route: 065
  5. CARBOPLATIN. [Suspect]
     Active Substance: CARBOPLATIN
     Indication: SMALL CELL LUNG CANCER EXTENSIVE STAGE
     Dosage: 270 MG
     Dates: start: 20210414
  6. DEXAMETHASONE. [Concomitant]
     Active Substance: DEXAMETHASONE
     Dosage: 2 MG
     Route: 065
     Dates: start: 20210527, end: 20210530
  7. DOCUSATE [Concomitant]
     Active Substance: DOCUSATE
     Indication: CONSTIPATION
     Dosage: UNK
     Route: 065
  8. BISOPROLOL [Concomitant]
     Active Substance: BISOPROLOL
     Dosage: UNK
     Route: 065
  9. METOCLOPRAMIDE. [Concomitant]
     Active Substance: METOCLOPRAMIDE
     Dosage: UNK
     Route: 065
     Dates: start: 20210603
  10. PAROXETINE. [Concomitant]
     Active Substance: PAROXETINE
     Dosage: UNK
     Route: 065
  11. RAMIPRIL. [Concomitant]
     Active Substance: RAMIPRIL
     Dosage: UNK
     Route: 065
  12. ETOPOSIDE. [Suspect]
     Active Substance: ETOPOSIDE
     Indication: SMALL CELL LUNG CANCER EXTENSIVE STAGE
     Dosage: 148 MG
     Dates: start: 20210414
  13. CODEINE [Concomitant]
     Active Substance: CODEINE
     Dosage: UNK
     Route: 065
  14. PARACETAMOL [Concomitant]
     Active Substance: ACETAMINOPHEN
     Dosage: UNK
     Route: 065
  15. DOCUSATE [Concomitant]
     Active Substance: DOCUSATE
     Route: 065
  16. VENTOLIN [Concomitant]
     Active Substance: ALBUTEROL SULFATE
     Dosage: UNK
     Route: 065
  17. ATEZOLIZUMAB. [Suspect]
     Active Substance: ATEZOLIZUMAB
     Dosage: UNK
     Dates: start: 20210524
  18. ATEZOLIZUMAB. [Suspect]
     Active Substance: ATEZOLIZUMAB
     Dosage: UNK
     Dates: start: 20210616
  19. DEXAMETHASONE. [Concomitant]
     Active Substance: DEXAMETHASONE
     Dosage: 8 MG
     Route: 065
     Dates: start: 20210526, end: 20210526
  20. IVABRADINE [Concomitant]
     Active Substance: IVABRADINE
     Dosage: UNK
     Route: 065
  21. ONDANSETRON [Concomitant]
     Active Substance: ONDANSETRON
     Dosage: 8 MG
     Route: 065
     Dates: start: 20210526, end: 20210526
  22. CLOPIDOGREL [Concomitant]
     Active Substance: CLOPIDOGREL BISULFATE
     Dosage: UNK
     Route: 065
  23. DOMPERIDONE [Concomitant]
     Active Substance: DOMPERIDONE
     Dosage: 10 MG
     Route: 065
     Dates: start: 20210526, end: 20210531
  24. ETOPOSIDE. [Suspect]
     Active Substance: ETOPOSIDE
     Dosage: 400 MG
     Route: 048
     Dates: start: 20210506
  25. MOVICOL [Concomitant]
     Active Substance: POLYETHYLENE GLYCOL 3350\POTASSIUM CHLORIDE\SODIUM BICARBONATE\SODIUM CHLORIDE
     Dosage: UNK
     Route: 065
     Dates: start: 20210603

REACTIONS (3)
  - Respiratory tract infection [Not Recovered/Not Resolved]
  - Thrombocytosis [Not Recovered/Not Resolved]
  - Hypomagnesaemia [Recovered/Resolved]

NARRATIVE: CASE EVENT DATE: 20210603
